FAERS Safety Report 5692498-6 (Version None)
Quarter: 2008Q2

REPORT INFORMATION
  Report Type: 
  Country: None (occurrence: None)
  Receive Date: 20080402
  Receipt Date: 20080326
  Transmission Date: 20081010
  Serious: No
  Sender: FDA-Public Use
  Company Number: US-BAXTER-2008BH002557

PATIENT
  Age: 49 Year
  Sex: Female
  Weight: 75 kg

DRUGS (7)
  1. HEPARIN SODIUM [Suspect]
     Indication: PROPHYLAXIS
     Dosage: DOSE UNIT:UNKNOWN
     Route: 033
     Dates: start: 20040101, end: 20080101
  2. HEPARIN SODIUM [Suspect]
     Dosage: DOSE UNIT:UNKNOWN
     Route: 033
     Dates: start: 20080201
  3. VITAMIN CAP [Concomitant]
     Indication: DRUG USE FOR UNKNOWN INDICATION
     Dosage: DOSE UNIT:UNKNOWN
     Route: 065
  4. BLOOD PRESSURE PILLS [Concomitant]
     Indication: HYPERTENSION
     Dosage: DOSE UNIT:UNKNOWN
     Route: 065
  5. POTASSIUM CHLORIDE [Concomitant]
     Indication: DRUG USE FOR UNKNOWN INDICATION
     Dosage: DOSE UNIT:UNKNOWN
     Route: 065
  6. DIANEAL [Concomitant]
     Indication: PERITONEAL DIALYSIS
     Route: 065
  7. HORMONE PILLS [Concomitant]
     Indication: DRUG USE FOR UNKNOWN INDICATION
     Dosage: DOSE UNIT:UNKNOWN
     Route: 048

REACTIONS (2)
  - ABDOMINAL PAIN UPPER [None]
  - PERITONITIS BACTERIAL [None]
